FAERS Safety Report 22266880 (Version 2)
Quarter: 2023Q2

REPORT INFORMATION
  Report Type: Spontaneous
  Country: MA (occurrence: MA)
  Receive Date: 20230428
  Receipt Date: 20230526
  Transmission Date: 20230721
  Serious: Yes (Death)
  Sender: FDA-Public Use
  Company Number: MA-BoehringerIngelheim-2023-BI-234107

PATIENT
  Age: 65 Year
  Sex: Male
  Weight: 70 kg

DRUGS (1)
  1. METALYSE [Suspect]
     Active Substance: TENECTEPLASE
     Indication: Acute myocardial infarction
     Route: 048
     Dates: start: 20230415, end: 20230415

REACTIONS (2)
  - Cardiac failure [Fatal]
  - Haemorrhage [Unknown]

NARRATIVE: CASE EVENT DATE: 20230415
